FAERS Safety Report 6649990-7 (Version None)
Quarter: 2010Q1

REPORT INFORMATION
  Report Type: 
  Country: None (occurrence: None)
  Receive Date: 20100324
  Receipt Date: 20100324
  Transmission Date: 20100710
  Serious: No
  Sender: FDA-Public Use
  Company Number: None

PATIENT
  Age: 84 Year
  Sex: Female
  Weight: 62.3696 kg

DRUGS (3)
  1. LISINOPRIL [Suspect]
     Indication: HYPERTENSION
     Dosage: 40 MG QD
     Route: 048
     Dates: start: 20100319
  2. PLAVIX [Concomitant]
  3. ATENOLOL [Concomitant]

REACTIONS (1)
  - SWELLING FACE [None]
